FAERS Safety Report 7669986-6 (Version None)
Quarter: 2011Q3

REPORT INFORMATION
  Report Type: 
  Country: None (occurrence: None)
  Receive Date: 20110808
  Receipt Date: 20110728
  Transmission Date: 20111222
  Serious: Yes (Hospitalization)
  Sender: FDA-Public Use
  Company Number: JP-ASTRAZENECA-2011SE42905

PATIENT
  Age: 700 Month
  Sex: Female
  Weight: 39.7 kg

DRUGS (8)
  1. SILECE [Concomitant]
     Indication: DEPRESSIVE DELUSION
  2. PERSANTIN [Concomitant]
  3. WARFARIN SODIUM [Concomitant]
  4. SEROQUEL [Suspect]
     Indication: DEPRESSIVE DELUSION
     Route: 048
     Dates: start: 20071201
  5. AMOXAPINE [Concomitant]
     Indication: DEPRESSIVE DELUSION
  6. SEROQUEL [Suspect]
     Route: 048
     Dates: end: 20110710
  7. MAGMITT [Concomitant]
     Indication: DEPRESSIVE DELUSION
  8. LANIRAPID [Concomitant]

REACTIONS (2)
  - HYPERGLYCAEMIA [None]
  - OFF LABEL USE [None]
